FAERS Safety Report 8320926-6 (Version None)
Quarter: 2012Q2

REPORT INFORMATION
  Report Type: 
  Country: None (occurrence: None)
  Receive Date: 20120430
  Receipt Date: 20120419
  Transmission Date: 20120825
  Serious: Yes (Hospitalization)
  Sender: FDA-Public Use
  Company Number: US-JNJFOC-20120410205

PATIENT
  Sex: Female
  Weight: 65.77 kg

DRUGS (2)
  1. TOPAMAX [Suspect]
     Indication: DRUG THERAPY
     Route: 048
  2. TOPIRAMATE [Suspect]
     Indication: DRUG THERAPY
     Route: 048

REACTIONS (6)
  - BLADDER CANCER [None]
  - SEDATION [None]
  - STUPOR [None]
  - FATIGUE [None]
  - MEMORY IMPAIRMENT [None]
  - INCORRECT DOSE ADMINISTERED [None]
